FAERS Safety Report 18478066 (Version 9)
Quarter: 2023Q2

REPORT INFORMATION
  Report Type: Report from Study
  Country: US (occurrence: None)
  Receive Date: 20201108
  Receipt Date: 20230509
  Transmission Date: 20230721
  Serious: Yes (Hospitalization)
  Sender: FDA-Public Use
  Company Number: US-ROCHE-2706476

PATIENT
  Age: 72 Year
  Sex: Male
  Weight: 103.6 kg

DRUGS (23)
  1. ATEZOLIZUMAB [Suspect]
     Active Substance: ATEZOLIZUMAB
     Indication: Hormone-refractory prostate cancer
     Dosage: ON 01/OCT/2020, THE PATIENT RECEIVED THE MOST RECENT DOSE OF ATEZOLIZUMAB PRIOR TO THE EVENT ONSET.
     Route: 041
     Dates: start: 20200326
  2. ATEZOLIZUMAB [Suspect]
     Active Substance: ATEZOLIZUMAB
     Route: 041
     Dates: start: 20201112
  3. CABOZANTINIB [Suspect]
     Active Substance: CABOZANTINIB
     Indication: Hormone-refractory prostate cancer
     Dosage: ON 21/OCT/2020, THE PATIENT RECEIVED THE MOST RECENT DOSE OF CABOZANTINIB PRIOR TO THE EVENT ONSET.
     Route: 048
     Dates: start: 20200326
  4. CABOZANTINIB [Suspect]
     Active Substance: CABOZANTINIB
     Route: 048
     Dates: end: 20201021
  5. CABOZANTINIB [Suspect]
     Active Substance: CABOZANTINIB
     Route: 048
     Dates: start: 20201203
  6. OXYCODONE [Concomitant]
     Active Substance: OXYCODONE
  7. ETODOLAC [Concomitant]
     Active Substance: ETODOLAC
  8. PERI-COLACE [Concomitant]
     Active Substance: CASANTHRANOL\DOCUSATE SODIUM
  9. DICLOFENAC [Concomitant]
     Active Substance: DICLOFENAC
  10. ACETAMINOPHEN\CAFFEINE [Concomitant]
     Active Substance: ACETAMINOPHEN\CAFFEINE
  11. COMPAZINE [Concomitant]
     Active Substance: PROCHLORPERAZINE MALEATE
  12. VITAMIN D3 [Concomitant]
     Active Substance: CHOLECALCIFEROL
  13. CIMETIDINE [Concomitant]
     Active Substance: CIMETIDINE
  14. TUMS ULTRA [Concomitant]
     Active Substance: CALCIUM CARBONATE
  15. ROXICODONE [Concomitant]
     Active Substance: OXYCODONE HYDROCHLORIDE
  16. COZAAR [Concomitant]
     Active Substance: LOSARTAN POTASSIUM
  17. AMLODIPINE [Concomitant]
     Active Substance: AMLODIPINE BESYLATE
  18. MAXZIDE [Concomitant]
     Active Substance: HYDROCHLOROTHIAZIDE\TRIAMTERENE
  19. NALOXEGOL [Concomitant]
     Active Substance: NALOXEGOL
  20. LORAZEPAM [Concomitant]
     Active Substance: LORAZEPAM
  21. MIRALAX [Concomitant]
     Active Substance: POLYETHYLENE GLYCOL 3350
  22. ZANTAC [Concomitant]
     Active Substance: RANITIDINE HYDROCHLORIDE
  23. PEPCID [Concomitant]
     Active Substance: FAMOTIDINE

REACTIONS (2)
  - Pulmonary embolism [Not Recovered/Not Resolved]
  - Platelet count decreased [Recovered/Resolved]

NARRATIVE: CASE EVENT DATE: 20201021
